FAERS Safety Report 20172403 (Version 2)
Quarter: 2021Q4

REPORT INFORMATION
  Report Type: Report from Study
  Country: US (occurrence: US)
  Receive Date: 20211210
  Receipt Date: 20211214
  Transmission Date: 20220303
  Serious: No
  Sender: FDA-Public Use
  Company Number: US-BRISTOL-MYERS SQUIBB COMPANY-BMS-2021-134373

PATIENT
  Age: 68 Year
  Sex: Female
  Weight: 52.2 kg

DRUGS (3)
  1. APIXABAN [Suspect]
     Active Substance: APIXABAN
     Indication: Thrombosis
     Dosage: UNK, BID
     Route: 048
     Dates: start: 2021
  2. HYDROCODONE BITARTRATE [Concomitant]
     Active Substance: HYDROCODONE BITARTRATE
     Indication: Product used for unknown indication
     Dosage: UNK
     Route: 065
  3. EYE DROPS [NAPHAZOLINE HYDROCHLORIDE] [Concomitant]
     Indication: Glaucoma
     Dosage: UNK
     Route: 065

REACTIONS (2)
  - Back pain [Unknown]
  - Movement disorder [Unknown]
